FAERS Safety Report 9933461 (Version 1)
Quarter: 2014Q1

REPORT INFORMATION
  Report Type: Report from Study
  Country: US (occurrence: US)
  Receive Date: 20140228
  Receipt Date: 20140228
  Transmission Date: 20141002
  Serious: No
  Sender: FDA-Public Use
  Company Number: US-MYLANLABS-2013S1021129

PATIENT
  Sex: Female

DRUGS (4)
  1. AMNESTEEM CAPSULES [Suspect]
     Dates: start: 2013, end: 2013
  2. AMNESTEEM [Suspect]
     Dates: start: 2013, end: 2013
  3. ABSORICA [Suspect]
     Dates: start: 2013, end: 2013
  4. AMNESTEEM CAPSULES [Suspect]
     Dates: start: 2013, end: 2013

REACTIONS (1)
  - Drug ineffective [Not Recovered/Not Resolved]
